FAERS Safety Report 12980796 (Version 1)
Quarter: 2016Q4

REPORT INFORMATION
  Report Type: Spontaneous
  Country: US (occurrence: US)
  Receive Date: 20161128
  Receipt Date: 20161128
  Transmission Date: 20170207
  Serious: No
  Sender: FDA-Public Use
  Company Number: US-CELGENEUS-USA-2016111087

PATIENT
  Sex: Female

DRUGS (6)
  1. DEXAMETHASONE. [Concomitant]
     Active Substance: DEXAMETHASONE
     Indication: PLASMA CELL MYELOMA
     Route: 065
  2. VELCADE [Concomitant]
     Active Substance: BORTEZOMIB
     Indication: PLASMA CELL MYELOMA
     Route: 065
     Dates: start: 201501, end: 201601
  3. POMALYST [Suspect]
     Active Substance: POMALIDOMIDE
     Indication: PLASMA CELL MYELOMA
     Dosage: QD
     Route: 048
     Dates: start: 201602
  4. REVLIMID [Suspect]
     Active Substance: LENALIDOMIDE
     Indication: PLASMA CELL MYELOMA
     Dosage: QD
     Route: 048
     Dates: start: 200904
  5. POMALYST [Suspect]
     Active Substance: POMALIDOMIDE
     Dosage: QD
     Route: 048
     Dates: start: 201605, end: 2016
  6. REVLIMID [Suspect]
     Active Substance: LENALIDOMIDE
     Dosage: QD
     Route: 048
     Dates: start: 201002, end: 2016

REACTIONS (2)
  - Protein total abnormal [Unknown]
  - Plasma cell myeloma [Unknown]
